FAERS Safety Report 15083797 (Version 3)
Quarter: 2018Q3

REPORT INFORMATION
  Report Type: Spontaneous
  Country: US (occurrence: US)
  Receive Date: 20180628
  Receipt Date: 20180925
  Transmission Date: 20181010
  Serious: No
  Sender: FDA-Public Use
  Company Number: US-PFIZER INC-2018256695

PATIENT
  Age: 40 Year
  Sex: Female

DRUGS (2)
  1. ENBREL [Suspect]
     Active Substance: ETANERCEPT
     Dosage: UNK
  2. METHOTREXATE SODIUM. [Suspect]
     Active Substance: METHOTREXATE SODIUM
     Dosage: 0.8 CC
     Route: 058

REACTIONS (7)
  - Limb discomfort [Unknown]
  - Dry eye [Unknown]
  - Dry mouth [Unknown]
  - Condition aggravated [Unknown]
  - Fatigue [Unknown]
  - Nasal congestion [Unknown]
  - Pain [Unknown]
